FAERS Safety Report 15158797 (Version 3)
Quarter: 2018Q3

REPORT INFORMATION
  Report Type: Report from Study
  Country: US (occurrence: US)
  Receive Date: 20180718
  Receipt Date: 20180809
  Transmission Date: 20181010
  Serious: Yes (Other)
  Sender: FDA-Public Use
  Company Number: US-AMGEN INC.-USASL2018093225

PATIENT
  Age: 62 Year
  Sex: Female
  Weight: 68.27 kg

DRUGS (3)
  1. TROKENDI [Concomitant]
     Active Substance: TOPIRAMATE
     Indication: MIGRAINE
     Dosage: 125 MG, UNK
     Route: 065
     Dates: start: 201410
  2. CYMBALTA [Concomitant]
     Active Substance: DULOXETINE HYDROCHLORIDE
     Indication: FIBROMYALGIA
     Dosage: 120 MG, QD
     Route: 065
     Dates: start: 201209
  3. AIMOVIG [Suspect]
     Active Substance: ERENUMAB-AOOE
     Indication: MIGRAINE WITHOUT AURA
     Dosage: 70 MG, UNK
     Route: 058
     Dates: start: 20180626

REACTIONS (4)
  - Balance disorder [Recovered/Resolved]
  - Dizziness [Unknown]
  - Dissociation [Recovered/Resolved]
  - Feeling abnormal [Recovered/Resolved]

NARRATIVE: CASE EVENT DATE: 20180626
